FAERS Safety Report 4278496-8 (Version None)
Quarter: 2004Q1

REPORT INFORMATION
  Report Type: 
  Country: None (occurrence: None)
  Receive Date: 20040123
  Receipt Date: 20040114
  Transmission Date: 20041129
  Serious: Yes (Hospitalization)
  Sender: FDA-Public Use
  Company Number: WAES 0401USA01090

PATIENT
  Age: 82 Year
  Sex: Female

DRUGS (2)
  1. ARIMIDEX [Concomitant]
  2. VIOXX [Suspect]
     Indication: PAIN IN EXTREMITY
     Route: 048
     Dates: start: 20020101

REACTIONS (4)
  - BLISTER [None]
  - NAUSEA [None]
  - OEDEMA PERIPHERAL [None]
  - THROMBOSIS [None]
